FAERS Safety Report 7183563-5 (Version None)
Quarter: 2010Q4

REPORT INFORMATION
  Report Type: 
  Country: None (occurrence: None)
  Receive Date: 20101222
  Receipt Date: 20101214
  Transmission Date: 20110411
  Serious: Yes (Other)
  Sender: FDA-Public Use
  Company Number: GB-JNJFOC-20101204999

PATIENT
  Age: 19 Year
  Sex: Female

DRUGS (2)
  1. TRINOVUM [Suspect]
     Indication: CONTRACEPTION
     Route: 048
  2. LEVETIRACETAM [Interacting]
     Indication: EPILEPSY
     Route: 065

REACTIONS (3)
  - DRUG EXPOSURE DURING PREGNANCY [None]
  - DRUG INTERACTION [None]
  - PREGNANCY ON ORAL CONTRACEPTIVE [None]
